FAERS Safety Report 9620898 (Version 2)
Quarter: 2013Q4

REPORT INFORMATION
  Report Type: Spontaneous
  Country: US (occurrence: US)
  Receive Date: 20131015
  Receipt Date: 20131112
  Transmission Date: 20140711
  Serious: Yes (Hospitalization)
  Sender: FDA-Public Use
  Company Number: US-BAYER-2013-124027

PATIENT
  Age: 25 Year
  Sex: Female
  Weight: 64.85 kg

DRUGS (5)
  1. MIRENA [Suspect]
     Indication: CONTRACEPTION
     Dosage: 20 MCG/DL, CONT
     Route: 015
     Dates: start: 20090714, end: 20130313
  2. DEXAMETHASONE [Concomitant]
     Dosage: 5 MG, UNK
     Route: 030
     Dates: start: 20121127
  3. TRIAMCINOLONE [Concomitant]
     Dosage: 40 MG, UNK
     Route: 030
     Dates: start: 20121127
  4. EPINEPHRINE [Concomitant]
     Dosage: 0.3 MG, UNK
     Route: 058
     Dates: start: 20121130
  5. DOXYCYCLINE [Concomitant]

REACTIONS (6)
  - Uterine perforation [None]
  - Device issue [None]
  - Injury [None]
  - Pain [None]
  - Scar [None]
  - Emotional distress [None]
